FAERS Safety Report 7152566-9 (Version None)
Quarter: 2010Q4

REPORT INFORMATION
  Report Type: 
  Country: None (occurrence: None)
  Receive Date: 20101209
  Receipt Date: 20101209
  Transmission Date: 20110411
  Serious: No
  Sender: FDA-Public Use
  Company Number: None

PATIENT
  Sex: Female
  Weight: 69.4003 kg

DRUGS (2)
  1. ZICAM NASAL SPRAY [Suspect]
  2. ZICAM NASAL GEL [Concomitant]

REACTIONS (2)
  - ANOSMIA [None]
  - INCORRECT DOSE ADMINISTERED [None]
